FAERS Safety Report 25670535 (Version 2)
Quarter: 2025Q3

REPORT INFORMATION
  Report Type: Spontaneous
  Country: JP (occurrence: JP)
  Receive Date: 20250812
  Receipt Date: 20250903
  Transmission Date: 20251021
  Serious: Yes (Other)
  Sender: AMGEN
  Company Number: JP-AMGEN-JPNSP2025157305

PATIENT
  Age: 57 Year
  Sex: Female

DRUGS (9)
  1. BLINCYTO [Suspect]
     Active Substance: BLINATUMOMAB
     Indication: B-cell type acute leukaemia
     Dosage: 9 MICROGRAM, QD 24HR DIV
     Route: 040
     Dates: start: 2021
  2. BLINCYTO [Suspect]
     Active Substance: BLINATUMOMAB
     Indication: Lymphocytic leukaemia
     Dosage: 28 MICROGRAM, QD 24HR DIV
     Route: 040
     Dates: start: 2021
  3. BLINCYTO [Suspect]
     Active Substance: BLINATUMOMAB
     Indication: Chronic myeloid leukaemia
  4. PONATINIB [Concomitant]
     Active Substance: PONATINIB
     Indication: Lymphocytic leukaemia
     Route: 065
     Dates: start: 2021
  5. PONATINIB [Concomitant]
     Active Substance: PONATINIB
     Indication: Chronic myeloid leukaemia
     Route: 065
     Dates: start: 2021
  6. FLUDARABINE [Concomitant]
     Active Substance: FLUDARABINE PHOSPHATE
     Dates: start: 202112
  7. MELPHALAN [Concomitant]
     Active Substance: MELPHALAN
     Dates: start: 202112
  8. TACROLIMUS [Concomitant]
     Active Substance: TACROLIMUS
     Indication: Prophylaxis
     Route: 065
     Dates: start: 202112
  9. METHOTREXATE [Concomitant]
     Active Substance: METHOTREXATE
     Route: 065
     Dates: start: 202112

REACTIONS (2)
  - Immune effector cell-associated neurotoxicity syndrome [Recovering/Resolving]
  - Acute graft versus host disease in intestine [Recovered/Resolved]

NARRATIVE: CASE EVENT DATE: 20210101
